FAERS Safety Report 5512871-6 (Version None)
Quarter: 2007Q4

REPORT INFORMATION
  Report Type: 
  Country: None (occurrence: None)
  Receive Date: 20071108
  Receipt Date: 20071024
  Transmission Date: 20080405
  Serious: Yes (Other)
  Sender: FDA-Public Use
  Company Number: B0493814A

PATIENT
  Age: 28 Year
  Sex: Male

DRUGS (18)
  1. MELPHALAN (FORMULATION UNKNOWN) (GENERIC) (MELPHALAN) [Suspect]
     Indication: DIFFUSE LARGE B-CELL LYMPHOMA STAGE II
  2. CYCLOPHOSPHAMIDE [Suspect]
     Indication: DIFFUSE LARGE B-CELL LYMPHOMA STAGE II
     Dosage: CYCLIC
  3. DOXORUBICIN HCL [Suspect]
     Indication: DIFFUSE LARGE B-CELL LYMPHOMA STAGE II
     Dosage: CYCLIC
  4. VINCRISTINE [Suspect]
     Indication: DIFFUSE LARGE B-CELL LYMPHOMA STAGE II
     Dosage: CYCLIC
  5. PREDNISONE [Suspect]
     Indication: DIFFUSE LARGE B-CELL LYMPHOMA STAGE II
     Dosage: CYCLIC
  6. RADIOTHERAPY (FORMULATION UNKNOWN) (RADIOTHERAPY) [Suspect]
     Indication: DIFFUSE LARGE B-CELL LYMPHOMA STAGE II
  7. ETOPOSIDE [Suspect]
     Indication: DIFFUSE LARGE B-CELL LYMPHOMA STAGE II
     Dosage: CYCLIC
  8. METHYLPREDNISOLONE [Suspect]
     Indication: DIFFUSE LARGE B-CELL LYMPHOMA STAGE II
     Dosage: CYCLIC
  9. CYTARABINE [Suspect]
     Indication: DIFFUSE LARGE B-CELL LYMPHOMA STAGE II
     Dosage: CYCLIC
  10. CISPLATIN [Suspect]
     Indication: DIFFUSE LARGE B-CELL LYMPHOMA STAGE II
     Dosage: CYCLIC
  11. RITUXIMAB (FORMULATION UNKNOWN) (RITUXIMAB) [Suspect]
     Indication: DIFFUSE LARGE B-CELL LYMPHOMA STAGE II
     Dosage: 375 MG/M2 WEEKLY
  12. CARMUSTINE [Suspect]
     Indication: DIFFUSE LARGE B-CELL LYMPHOMA STAGE II
  13. FLUDARABINE PHOSPHATE [Suspect]
     Indication: DIFFUSE LARGE B-CELL LYMPHOMA STAGE II
  14. CORTICOSTEROID (FORMULATION UNKNOWN) (CORTICOSTEROID) [Suspect]
     Indication: GRAFT VERSUS HOST DISEASE
  15. METHOTREXATE [Concomitant]
  16. CYCLOSPORINE [Concomitant]
  17. VORICONAZOLE [Concomitant]
  18. GANCICLOVIR [Concomitant]

REACTIONS (12)
  - ACUTE GRAFT VERSUS HOST DISEASE IN INTESTINE [None]
  - ACUTE GRAFT VERSUS HOST DISEASE IN SKIN [None]
  - ARTHRITIS BACTERIAL [None]
  - CYTOMEGALOVIRUS INFECTION [None]
  - GENERALISED ERYTHEMA [None]
  - HAEMODIALYSIS [None]
  - HYPOGAMMAGLOBULINAEMIA [None]
  - IMMUNE RECONSTITUTION SYNDROME [None]
  - LYMPHOPENIA [None]
  - PNEUMONIA RESPIRATORY SYNCYTIAL VIRAL [None]
  - RENAL FAILURE ACUTE [None]
  - UREAPLASMA INFECTION [None]
